FAERS Safety Report 10651514 (Version 1)
Quarter: 2014Q4

REPORT INFORMATION
  Report Type: Spontaneous
  Country: US (occurrence: None)
  Receive Date: 20141212
  Receipt Date: 20141212
  Transmission Date: 20150529
  Serious: Yes (Hospitalization)
  Sender: FDA-Public Use
  Company Number: None

PATIENT
  Sex: Female

DRUGS (1)
  1. IMBRUVICA [Suspect]
     Active Substance: IBRUTINIB
     Indication: CHRONIC LYMPHOCYTIC LEUKAEMIA
     Dosage: UNKNOWN (STILL CURRENTLY TAKING
     Route: 048

REACTIONS (5)
  - Middle insomnia [None]
  - Haemoptysis [None]
  - Platelet count decreased [None]
  - Cerebral haemorrhage [None]
  - Dysgeusia [None]
